FAERS Safety Report 7865147-6 (Version None)
Quarter: 2011Q4

REPORT INFORMATION
  Report Type: 
  Country: None (occurrence: None)
  Receive Date: 20111028
  Receipt Date: 20101021
  Transmission Date: 20120403
  Serious: No
  Sender: FDA-Public Use
  Company Number: US-GLAXOSMITHKLINE-A0888048A

PATIENT
  Age: 59 Year
  Sex: Male

DRUGS (10)
  1. ALBUTEROL [Concomitant]
  2. METFORMIN HCL [Concomitant]
  3. COZAAR [Concomitant]
  4. ADVAIR DISKUS 100/50 [Suspect]
     Indication: ASTHMA
     Dosage: 1PUFF SINGLE DOSE
     Route: 055
     Dates: start: 20101020
  5. INSULIN [Concomitant]
  6. PROTONIX [Concomitant]
  7. TOPROL-XL [Concomitant]
  8. ASPIRIN [Concomitant]
  9. NORVASC [Concomitant]
  10. FISH OIL [Concomitant]

REACTIONS (1)
  - CANDIDIASIS [None]
